FAERS Safety Report 13714359 (Version 1)
Quarter: 2017Q3

REPORT INFORMATION
  Report Type: Spontaneous
  Country: US (occurrence: US)
  Receive Date: 20170704
  Receipt Date: 20170704
  Transmission Date: 20171127
  Serious: Yes (Other)
  Sender: FDA-Public Use
  Company Number: US-B.I. PHARMACEUTICALS,INC./RIDGEFIELD-2017-BI-036300

PATIENT
  Age: 68 Year
  Sex: Female

DRUGS (3)
  1. LOSARTIN [Concomitant]
     Active Substance: LOSARTAN
     Indication: HYPERTENSION
     Dosage: ONCE DAILY;  FORM STRENGTH: 25MG; FORMULATION: TABLET
     Route: 048
  2. SPIRIVA [Suspect]
     Active Substance: TIOTROPIUM BROMIDE MONOHYDRATE
     Indication: CHRONIC OBSTRUCTIVE PULMONARY DISEASE
     Route: 055
     Dates: start: 2015
  3. ALENBRONATE SODIUM [Concomitant]
     Indication: OSTEOPOROSIS
     Dosage: ONCE WEEKLY;  FORM STRENGTH: 70MG; FORMULATION: TABLET
     Route: 048

REACTIONS (2)
  - Fatigue [Not Recovered/Not Resolved]
  - Macular degeneration [Not Recovered/Not Resolved]

NARRATIVE: CASE EVENT DATE: 201704
